FAERS Safety Report 17797772 (Version 1)
Quarter: 2020Q2

REPORT INFORMATION
  Report Type: Spontaneous
  Country: US (occurrence: US)
  Receive Date: 20200515
  Receipt Date: 20200515
  Transmission Date: 20200714
  Serious: Yes (Other)
  Sender: FDA-Public Use
  Company Number: None

PATIENT
  Age: 35 Year
  Sex: Female
  Weight: 65.77 kg

DRUGS (1)
  1. TRI-SPRINTEC [Suspect]
     Active Substance: ETHINYL ESTRADIOL\NORGESTIMATE
     Indication: MENSTRUATION IRREGULAR
     Route: 048
     Dates: start: 20191001, end: 20200101

REACTIONS (6)
  - Dermatitis [None]
  - Allergy to metals [None]
  - Erythema [None]
  - Pruritus [None]
  - Urticaria [None]
  - Cheilitis [None]

NARRATIVE: CASE EVENT DATE: 20191014
